FAERS Safety Report 7650266-X (Version None)
Quarter: 2011Q3

REPORT INFORMATION
  Report Type: 
  Country: None (occurrence: None)
  Receive Date: 20110802
  Receipt Date: 20110722
  Transmission Date: 20111222
  Serious: Yes (Hospitalization)
  Sender: FDA-Public Use
  Company Number: US-AMGEN-USASP2011037383

PATIENT
  Age: 56 Year
  Sex: Female

DRUGS (1)
  1. ENBREL [Suspect]
     Indication: ARTHRITIS
     Dosage: 25 MG, 2 TIMES/WK
     Dates: start: 20040914

REACTIONS (5)
  - LUNG DISORDER [None]
  - BACK INJURY [None]
  - DRUG INEFFECTIVE [None]
  - INJECTION SITE PAIN [None]
  - CHEST WALL MASS [None]
